FAERS Safety Report 13791924 (Version 3)
Quarter: 2018Q1

REPORT INFORMATION
  Report Type: Spontaneous
  Country: US (occurrence: US)
  Receive Date: 20170725
  Receipt Date: 20180108
  Transmission Date: 20180508
  Serious: No
  Sender: FDA-Public Use
  Company Number: US-BAYER-2017-140380

PATIENT
  Age: 40 Year
  Sex: Female

DRUGS (1)
  1. SKYLA [Suspect]
     Active Substance: LEVONORGESTREL
     Indication: MENORRHAGIA
     Dosage: 14 MCG/24HR, CONT
     Route: 015

REACTIONS (4)
  - Genital paraesthesia [None]
  - Female sexual dysfunction [None]
  - Device expulsion [None]
  - Medical device discomfort [Not Recovered/Not Resolved]
